FAERS Safety Report 19003483 (Version 1)
Quarter: 2021Q1

REPORT INFORMATION
  Report Type: Spontaneous
  Country: US (occurrence: US)
  Receive Date: 20210312
  Receipt Date: 20210312
  Transmission Date: 20210420
  Serious: No
  Sender: FDA-Public Use
  Company Number: US-OCULAR THERAPEUTIX-2021OCX00003

PATIENT

DRUGS (1)
  1. DEXTENZA [Suspect]
     Active Substance: DEXAMETHASONE

REACTIONS (1)
  - Corneal oedema [Unknown]
